FAERS Safety Report 16117541 (Version 2)
Quarter: 2019Q2

REPORT INFORMATION
  Report Type: Report from Study
  Country: DE (occurrence: DE)
  Receive Date: 20190326
  Receipt Date: 20190408
  Transmission Date: 20190711
  Serious: Yes (Hospitalization, Other)
  Sender: FDA-Public Use
  Company Number: PHHY2017DE042524

PATIENT
  Age: 77 Year
  Sex: Male
  Weight: 108 kg

DRUGS (29)
  1. EXJADE [Suspect]
     Active Substance: DEFERASIROX
     Dosage: 360 MG, QD (3.55 MG/KG, BODYWEIGHT/DAY=1 TABLET ? 360MG)
     Route: 048
     Dates: start: 20170316, end: 20170726
  2. EXJADE [Suspect]
     Active Substance: DEFERASIROX
     Dosage: 360 MG, QD (11.61MG/KG BODYWEIGHT/DAY=3TABLETS ? 360MG )
     Route: 048
     Dates: start: 20190119
  3. ALLOPURINOL. [Concomitant]
     Active Substance: ALLOPURINOL
     Indication: PROPHYLAXIS
     Dosage: 100 OT, QD  (1-0-0)
     Route: 065
     Dates: start: 20160322
  4. EXJADE [Suspect]
     Active Substance: DEFERASIROX
     Dosage: 360 MG, QD (10.64 MG/KG BODYWEIGHT/DAY=3TABLETS ? 360MG )
     Route: 048
     Dates: start: 20171123, end: 20180108
  5. EXJADE [Suspect]
     Active Substance: DEFERASIROX
     Dosage: 360 MG, QD (7.1MG/KG BODYWEIGHT/DAY=2TABLETS ? 360MG )
     Route: 048
     Dates: start: 20180509, end: 20180627
  6. EXJADE [Suspect]
     Active Substance: DEFERASIROX
     Dosage: 360 MG, QD (7.74 MG/KG BODYWEIGHT/DAY=2TABLETS ? 360MG  )
     Route: 048
     Dates: start: 20181213, end: 20190118
  7. DOCITON [Concomitant]
     Active Substance: PROPRANOLOL HYDROCHLORIDE
     Indication: HYPERTENSION
     Dosage: 10 OT, QD (1-0-0)
     Route: 065
  8. PANTOPRAZOLE [Concomitant]
     Active Substance: PANTOPRAZOLE
     Indication: PROPHYLAXIS
     Dosage: 40 OT, QD (1-0-0)
     Route: 065
  9. EXJADE [Suspect]
     Active Substance: DEFERASIROX
     Dosage: 360 MG, QD (10.64MG/KG BODYWEIGHT/DAY=3TABLETS ? 360MG )
     Route: 048
     Dates: start: 20180628, end: 20181212
  10. TORASEMIDE [Concomitant]
     Active Substance: TORSEMIDE
     Indication: HYPERTENSION
     Dosage: 10 OT, QD (1-0-0)
     Route: 065
  11. ASPIRIN. [Concomitant]
     Active Substance: ASPIRIN
     Indication: HYPERTENSION
     Dosage: 100 OT, QD (1-0-0)
     Route: 065
  12. EXJADE [Suspect]
     Active Substance: DEFERASIROX
     Indication: MYELODYSPLASTIC SYNDROME
     Dosage: 6.7 MG/KG, QD (2 TABLETS OF 3 60 MG)
     Route: 065
     Dates: start: 20170119, end: 20170315
  13. EXJADE [Suspect]
     Active Substance: DEFERASIROX
     Dosage: 540 MG, QD (5.32 MG/KG BODYWEIGHT/DAY=1TABLET ? 360MG AND 1 TABLET ? 180MG)
     Route: 048
     Dates: start: 20170727, end: 20171027
  14. TORASEMIDE [Concomitant]
     Active Substance: TORSEMIDE
     Dosage: UNK
     Route: 065
  15. EXJADE [Suspect]
     Active Substance: DEFERASIROX
     Indication: MYELODYSPLASTIC SYNDROME
     Dosage: 10 MG/KG, QD (2 TABLETS OF 500MG)
     Route: 065
     Dates: start: 20160108, end: 20160208
  16. EXJADE [Suspect]
     Active Substance: DEFERASIROX
     Dosage: 13 MG/KG, QD (3 TABLETS OF 500 MG)
     Route: 065
     Dates: start: 20160209, end: 20170118
  17. EXJADE [Suspect]
     Active Substance: DEFERASIROX
     Dosage: 360 MG, QD (3.55 MG/KG BODYWEIGHT/DAY=1TABLET ? 360MG )
     Route: 048
     Dates: start: 20180202, end: 20180508
  18. PARIET [Concomitant]
     Active Substance: RABEPRAZOLE SODIUM
     Indication: PROPHYLAXIS
     Dosage: UNK
     Route: 065
     Dates: start: 20160322
  19. MAGNESIUM [Concomitant]
     Active Substance: MAGNESIUM
     Indication: PROPHYLAXIS
     Dosage: PRN
     Route: 065
     Dates: start: 20170715
  20. FENISTIL [Concomitant]
     Active Substance: DIMETHINDENE
     Indication: PROPHYLAXIS
     Dosage: 1 DF, PRN
     Route: 065
     Dates: start: 20171215
  21. EXJADE [Suspect]
     Active Substance: DEFERASIROX
     Dosage: 360 MG, QD (7.1 MG/KG BODYWEIGHT/DAY =2TABLETS ? 360MG )
     Route: 048
     Dates: start: 20171028, end: 20171122
  22. AMLODIPINE [Concomitant]
     Active Substance: AMLODIPINE BESYLATE
     Indication: HYPERTENSION
     Dosage: 10 OT, QD (1-0-0)
     Route: 065
  23. PREDNISOLUT [Concomitant]
     Active Substance: PREDNISOLONE
     Indication: PROPHYLAXIS
     Dosage: 100 MG/SDH, ON DEMAND
     Route: 065
     Dates: start: 20171215
  24. SIMVASTATIN. [Concomitant]
     Active Substance: SIMVASTATIN
     Indication: HYPERCHOLESTEROLAEMIA
     Dosage: UNK
     Route: 065
     Dates: start: 20160322
  25. DULCOLAX NOS [Concomitant]
     Active Substance: BISACODYL OR DOCUSATE SODIUM
     Indication: PROPHYLAXIS
     Dosage: PRN
     Route: 065
     Dates: start: 20160809
  26. RANITIC [Concomitant]
     Active Substance: RANITIDINE HYDROCHLORIDE
     Indication: PROPHYLAXIS
     Dosage: 1 DF, ON DEMAND
     Route: 065
     Dates: start: 20171215
  27. ATORVASTATIN [Concomitant]
     Active Substance: ATORVASTATIN
     Indication: ARTERIAL OCCLUSIVE DISEASE
     Dosage: 20 OT, QD (1-0-0)
     Route: 065
  28. CALCIMED D3 [Concomitant]
     Active Substance: CALCIUM CARBONATE\CHOLECALCIFEROL
     Indication: PROPHYLAXIS
     Dosage: 500 MG/1000IE, ON DEMAND, PRN
     Route: 065
     Dates: start: 20180731
  29. IBEROGAST [Concomitant]
     Active Substance: HERBALS
     Indication: PRODUCT USED FOR UNKNOWN INDICATION
     Dosage: 20 DRP, TID
     Route: 065
     Dates: start: 20160420

REACTIONS (5)
  - Infected skin ulcer [Unknown]
  - Varicose vein [Recovered/Resolved]
  - Hyperkeratosis [Recovered/Resolved]
  - Erysipelas [Recovered/Resolved]
  - Oedema peripheral [Not Recovered/Not Resolved]

NARRATIVE: CASE EVENT DATE: 20160128
